FAERS Safety Report 12652452 (Version 1)
Quarter: 2016Q3

REPORT INFORMATION
  Report Type: Spontaneous
  Country: US (occurrence: US)
  Receive Date: 20160815
  Receipt Date: 20160815
  Transmission Date: 20161109
  Serious: No
  Sender: FDA-Public Use
  Company Number: US-PFIZER INC-2016370892

PATIENT
  Age: 35 Year

DRUGS (4)
  1. CLINDAMYCIN HCL [Suspect]
     Active Substance: CLINDAMYCIN HYDROCHLORIDE
  2. REGLAN [Suspect]
     Active Substance: METOCLOPRAMIDE HYDROCHLORIDE
  3. AMOXICILLIN. [Suspect]
     Active Substance: AMOXICILLIN
  4. PHENERGAN [Suspect]
     Active Substance: PROMETHAZINE HYDROCHLORIDE

REACTIONS (1)
  - Drug hypersensitivity [Unknown]
